FAERS Safety Report 7070987-X (Version None)
Quarter: 2010Q4

REPORT INFORMATION
  Report Type: 
  Country: None (occurrence: None)
  Receive Date: 20101029
  Receipt Date: 20101022
  Transmission Date: 20110411
  Serious: Yes (Other)
  Sender: FDA-Public Use
  Company Number: US-JNJFOC-20101007213

PATIENT
  Age: 27 Year
  Sex: Female
  Weight: 61.24 kg

DRUGS (2)
  1. MONISTAT 7 [Suspect]
     Route: 067
  2. MONISTAT 7 [Suspect]
     Indication: FUNGAL INFECTION
     Route: 067

REACTIONS (2)
  - CHEMICAL INJURY [None]
  - VAGINAL HAEMORRHAGE [None]
